FAERS Safety Report 10145836 (Version 1)
Quarter: 2014Q2

REPORT INFORMATION
  Report Type: Report from Study
  Country: US (occurrence: US)
  Receive Date: 20140501
  Receipt Date: 20140501
  Transmission Date: 20141212
  Serious: No
  Sender: FDA-Public Use
  Company Number: US-ABBVIE-14P-163-1207760-00

PATIENT
  Sex: Female

DRUGS (2)
  1. CREON [Suspect]
     Indication: CYSTIC FIBROSIS
  2. CREON [Suspect]
     Indication: PANCREATIC INSUFFICIENCY

REACTIONS (2)
  - Malaise [Unknown]
  - Feeling abnormal [Unknown]
